FAERS Safety Report 10284329 (Version 1)
Quarter: 2014Q3

REPORT INFORMATION
  Report Type: Spontaneous
  Country: US (occurrence: None)
  Receive Date: 20140703
  Receipt Date: 20140703
  Transmission Date: 20150326
  Serious: Yes (Hospitalization)
  Sender: FDA-Public Use
  Company Number: None

PATIENT
  Age: 34 Year
  Sex: Female
  Weight: 63.5 kg

DRUGS (1)
  1. PANTOPRAZOLE [Suspect]
     Active Substance: PANTOPRAZOLE SODIUM
     Indication: GASTRIC ULCER
     Route: 048
     Dates: start: 20140530, end: 20140623

REACTIONS (15)
  - Muscle spasms [None]
  - Neck pain [None]
  - Influenza like illness [None]
  - Weight decreased [None]
  - Oral herpes [None]
  - Dyspnoea [None]
  - Abdominal pain upper [None]
  - Bone pain [None]
  - Fatigue [None]
  - Muscle twitching [None]
  - Asthenia [None]
  - Myalgia [None]
  - Swelling face [None]
  - Faeces discoloured [None]
  - Lymphadenopathy [None]

NARRATIVE: CASE EVENT DATE: 20140625
